FAERS Safety Report 7068057-X (Version None)
Quarter: 2010Q4

REPORT INFORMATION
  Report Type: 
  Country: None (occurrence: None)
  Receive Date: 20101020
  Receipt Date: 20101006
  Transmission Date: 20110411
  Serious: Yes (Death)
  Sender: FDA-Public Use
  Company Number: DSA_44104_2010

PATIENT
  Age: 44 Year
  Sex: Female

DRUGS (2)
  1. NITOMAN TAB [Suspect]
     Indication: CHOREA
     Dosage: (DF ORAL)
     Route: 048
  2. OTHER NERVOUS SYSTEM DRUGS [Concomitant]

REACTIONS (1)
  - MYOCARDIAL INFARCTION [None]
